FAERS Safety Report 7347214-9 (Version None)
Quarter: 2011Q1

REPORT INFORMATION
  Report Type: 
  Country: None (occurrence: None)
  Receive Date: 20110303
  Receipt Date: 20110224
  Transmission Date: 20110831
  Serious: Yes (Other)
  Sender: FDA-Public Use
  Company Number: USA/USA/11/0017511

PATIENT
  Age: 59 Year
  Sex: Male

DRUGS (21)
  1. AMBIEN [Concomitant]
  2. COUMADIN [Concomitant]
  3. TACROLIMUS [Suspect]
     Indication: IMMUNOSUPPRESSANT DRUG THERAPY
     Dosage: 2 DOSAGE FORMS, 2 IN 1 D, ORAL, 4.5MG, FOUR 1 MG CAPSULES+ONE 0.5MG CAPSULES, ORAL
     Route: 048
     Dates: start: 20101001
  4. TACROLIMUS [Suspect]
     Indication: IMMUNOSUPPRESSANT DRUG THERAPY
     Dosage: 2 DOSAGE FORMS, 2 IN 1 D, ORAL, 4.5MG, FOUR 1 MG CAPSULES+ONE 0.5MG CAPSULES, ORAL
     Route: 048
     Dates: start: 20100904
  5. ATIVAN [Concomitant]
  6. COLACE (DOCUSATE SODIUM) [Concomitant]
  7. BUTALBITAL/ASA/CAFFEINE (BUTALBITAL W/ASPIRIN/CAFFEINE) [Concomitant]
  8. CLONIDINE [Concomitant]
  9. MIRALAX [Concomitant]
  10. BENADRYL [Concomitant]
  11. NIFEDIPINE [Concomitant]
  12. LORATADINE [Concomitant]
  13. TOPIRAMATE [Concomitant]
  14. NORVASC [Concomitant]
  15. PROTONIX [Concomitant]
  16. ZOLOFT [Concomitant]
  17. LOPRESSOR [Concomitant]
  18. FLOMAX [Concomitant]
  19. FERROUS SULFATE TAB [Concomitant]
  20. TACROLIMUS [Suspect]
  21. CELLCEPT [Concomitant]

REACTIONS (2)
  - DRUG LEVEL BELOW THERAPEUTIC [None]
  - IMMUNOSUPPRESSANT DRUG LEVEL DECREASED [None]
